FAERS Safety Report 18322280 (Version 2)
Quarter: 2020Q4

REPORT INFORMATION
  Report Type: Spontaneous
  Country: FR (occurrence: FR)
  Receive Date: 20200928
  Receipt Date: 20201012
  Transmission Date: 20210113
  Serious: No
  Sender: FDA-Public Use
  Company Number: FR-JNJFOC-20200926529

PATIENT

DRUGS (3)
  1. PEMBROLIZUMAB. [Concomitant]
     Active Substance: PEMBROLIZUMAB
     Indication: BLADDER CANCER
     Route: 065
     Dates: start: 201803, end: 201810
  2. REMICADE [Suspect]
     Active Substance: INFLIXIMAB
     Indication: AUTOIMMUNE COLITIS
     Dosage: 5 MG/KG (WEEK 1 AND WEEK 2, NO MORE DETAILS AVAILABLE)
     Route: 042
     Dates: start: 201812
  3. CORTICOSTEROID NOS [Concomitant]
     Active Substance: CORTICOSTEROID NOS
     Indication: NERVOUS SYSTEM DISORDER
     Dosage: 2 MG/KG, DAILY
     Route: 065
     Dates: start: 201901

REACTIONS (2)
  - Off label use [Unknown]
  - Product use in unapproved indication [Unknown]

NARRATIVE: CASE EVENT DATE: 201812
